FAERS Safety Report 7791932-5 (Version None)
Quarter: 2011Q3

REPORT INFORMATION
  Report Type: 
  Country: None (occurrence: None)
  Receive Date: 20110929
  Receipt Date: 20110914
  Transmission Date: 20111222
  Serious: Yes (Hospitalization)
  Sender: FDA-Public Use
  Company Number: 2011SGN00207

PATIENT
  Age: 20 Year
  Sex: Female
  Weight: 71.9858 kg

DRUGS (6)
  1. BRENTUXIMAB VEDOTIN (BRENTUXIMAB VEDOTIN) INJECTION [Suspect]
     Indication: HODGKIN'S DISEASE
     Dosage: 1.8 MG/KG, Q21D, INTTRAVENOUS
     Route: 042
     Dates: end: 20110824
  2. PREDNISOLONE ACETATE [Concomitant]
  3. MORPHINE SULFATE INJ [Concomitant]
  4. RABEPRAZOLE SODIUM [Concomitant]
  5. DEXAMETHASONE SODIUM PHOSPHATE [Concomitant]
  6. HYDROMORPHONE HCL [Concomitant]

REACTIONS (1)
  - PNEUMONIA [None]
